FAERS Safety Report 5592242-7 (Version None)
Quarter: 2008Q1

REPORT INFORMATION
  Report Type: 
  Country: None (occurrence: None)
  Receive Date: 20080111
  Receipt Date: 20080107
  Transmission Date: 20080703
  Serious: Yes (Hospitalization)
  Sender: FDA-Public Use
  Company Number: 2007BI026277

PATIENT
  Age: 69 Year
  Sex: Female

DRUGS (1)
  1. AVONEX [Suspect]
     Indication: MULTIPLE SCLEROSIS
     Dosage: IM
     Route: 030
     Dates: start: 20000918

REACTIONS (9)
  - ABASIA [None]
  - BACTERIAL INFECTION [None]
  - DEHYDRATION [None]
  - DIARRHOEA [None]
  - DYSARTHRIA [None]
  - ENTERITIS INFECTIOUS [None]
  - HYPOAESTHESIA [None]
  - MULTIPLE SCLEROSIS [None]
  - WEIGHT DECREASED [None]
